FAERS Safety Report 13689073 (Version 1)
Quarter: 2017Q2

REPORT INFORMATION
  Report Type: Spontaneous
  Country: US (occurrence: US)
  Receive Date: 20170624
  Receipt Date: 20170624
  Transmission Date: 20170830
  Serious: Yes (Death, Disabling)
  Sender: FDA-Public Use
  Company Number: None

PATIENT
  Age: 46 Year
  Sex: Female
  Weight: 74.25 kg

DRUGS (4)
  1. LORAZEPAM. [Suspect]
     Active Substance: LORAZEPAM
     Indication: HYPERTHYROIDISM
     Dosage: ?          QUANTITY:1 TABLET(S);?
     Route: 048
     Dates: start: 20150301, end: 20150901
  2. HYDROXICINE [Concomitant]
  3. RESPERIDONE [Concomitant]
     Active Substance: RISPERIDONE
  4. GABAPENTIN. [Concomitant]
     Active Substance: GABAPENTIN

REACTIONS (25)
  - Mental impairment [None]
  - Derealisation [None]
  - Eating disorder [None]
  - Abulia [None]
  - Petit mal epilepsy [None]
  - Depersonalisation/derealisation disorder [None]
  - Completed suicide [None]
  - Nervous system disorder [None]
  - Chest discomfort [None]
  - Screaming [None]
  - Crying [None]
  - Confusional state [None]
  - Therapy cessation [None]
  - Panic reaction [None]
  - Neuralgia [None]
  - Feeling abnormal [None]
  - Intrusive thoughts [None]
  - Gait disturbance [None]
  - Akathisia [None]
  - Agitation [None]
  - Abnormal behaviour [None]
  - Tremor [None]
  - Visual impairment [None]
  - Post-traumatic stress disorder [None]
  - Paraesthesia [None]

NARRATIVE: CASE EVENT DATE: 20150501
